FAERS Safety Report 21965353 (Version 21)
Quarter: 2024Q1

REPORT INFORMATION
  Report Type: Spontaneous
  Country: CA (occurrence: CA)
  Receive Date: 20230208
  Receipt Date: 20240314
  Transmission Date: 20240409
  Serious: Yes (Other)
  Sender: FDA-Public Use
  Company Number: CA-CELLTRION INC.-2022CA006582

PATIENT

DRUGS (17)
  1. INFLECTRA [Suspect]
     Active Substance: INFLIXIMAB-DYYB
     Indication: Colitis ulcerative
     Dosage: 600 MG, EVERY 6 WEEKS
     Route: 042
     Dates: start: 20220411
  2. INFLECTRA [Suspect]
     Active Substance: INFLIXIMAB-DYYB
     Dosage: 600 MG, EVERY 6 WEEKS
     Route: 042
     Dates: start: 20220524
  3. INFLECTRA [Suspect]
     Active Substance: INFLIXIMAB-DYYB
     Dosage: 600 MG, EVERY 6 WEEKS
     Route: 042
     Dates: start: 20220706
  4. INFLECTRA [Suspect]
     Active Substance: INFLIXIMAB-DYYB
     Dosage: 600 MG, EVERY 6 WEEKS
     Route: 042
     Dates: start: 20220816
  5. INFLECTRA [Suspect]
     Active Substance: INFLIXIMAB-DYYB
     Dosage: 600 MG, EVERY 6 WEEKS
     Route: 042
     Dates: start: 20220927
  6. INFLECTRA [Suspect]
     Active Substance: INFLIXIMAB-DYYB
     Dosage: 600 MG, EVERY 6 WEEKS
     Route: 042
     Dates: start: 20221108
  7. INFLECTRA [Suspect]
     Active Substance: INFLIXIMAB-DYYB
     Dosage: 600 MG, EVERY 6 WEEKS
     Route: 042
     Dates: start: 20221220
  8. INFLECTRA [Suspect]
     Active Substance: INFLIXIMAB-DYYB
     Dosage: 600 MG, EVERY 6 WEEKS
     Route: 042
     Dates: start: 20230131
  9. INFLECTRA [Suspect]
     Active Substance: INFLIXIMAB-DYYB
     Dosage: 600 MG, EVERY 6 WEEKS
     Route: 042
     Dates: start: 20230315, end: 20230315
  10. INFLECTRA [Suspect]
     Active Substance: INFLIXIMAB-DYYB
     Dosage: 600 MG, EVERY 6 WEEKS
     Route: 042
     Dates: start: 20230425
  11. INFLECTRA [Suspect]
     Active Substance: INFLIXIMAB-DYYB
     Dosage: 600 MG, EVERY 6 WEEKS
     Route: 042
     Dates: start: 20230616
  12. INFLECTRA [Suspect]
     Active Substance: INFLIXIMAB-DYYB
     Dosage: 600 MG, AFTER 9 WEEKS AND 5 DAYS
     Route: 042
     Dates: start: 20230823
  13. INFLECTRA [Suspect]
     Active Substance: INFLIXIMAB-DYYB
     Dosage: 600 MG, EVERY 6 WEEKS
     Route: 042
     Dates: start: 20231004
  14. INFLECTRA [Suspect]
     Active Substance: INFLIXIMAB-DYYB
     Dosage: 600 MG, 11 WEEKS AFTER LAST TREATMENT PRESCRIBED FREQUENCY EVERY 6 WEEKS
     Route: 042
     Dates: start: 20231220
  15. INFLECTRA [Suspect]
     Active Substance: INFLIXIMAB-DYYB
     Dosage: 600 MG, EVERY 6 WEEKS (600 MG, AFTER 10 WEEKS AND 6 DAYS AFTER LAST TREATMENT)
     Route: 042
     Dates: start: 20240305
  16. ELIPTA [Concomitant]
     Dosage: UNK
  17. METHOTREXATE [Concomitant]
     Active Substance: METHOTREXATE
     Dosage: 10 MG, WEEKLY
     Route: 048
     Dates: start: 2002

REACTIONS (27)
  - Uveitis [Recovering/Resolving]
  - Productive cough [Not Recovered/Not Resolved]
  - Tooth fracture [Recovered/Resolved]
  - Lower respiratory tract infection [Recovered/Resolved]
  - Oedema peripheral [Not Recovered/Not Resolved]
  - Eye infection bacterial [Recovering/Resolving]
  - Anxiety [Recovering/Resolving]
  - Fall [Unknown]
  - Weight decreased [Not Recovered/Not Resolved]
  - Decreased appetite [Not Recovered/Not Resolved]
  - Asthenia [Not Recovered/Not Resolved]
  - Contusion [Not Recovered/Not Resolved]
  - Skin laceration [Unknown]
  - Sputum discoloured [Not Recovered/Not Resolved]
  - Oropharyngeal pain [Not Recovered/Not Resolved]
  - Pharyngitis [Not Recovered/Not Resolved]
  - Influenza [Not Recovered/Not Resolved]
  - Nasopharyngitis [Not Recovered/Not Resolved]
  - Fatigue [Not Recovered/Not Resolved]
  - Urinary tract infection [Recovering/Resolving]
  - COVID-19 [Recovered/Resolved]
  - Blood pressure systolic increased [Unknown]
  - Condition aggravated [Not Recovered/Not Resolved]
  - Therapeutic response shortened [Recovered/Resolved]
  - Intentional product use issue [Unknown]
  - Off label use [Unknown]
  - Off label use [Unknown]

NARRATIVE: CASE EVENT DATE: 20220411
